FAERS Safety Report 15196979 (Version 3)
Quarter: 2018Q3

REPORT INFORMATION
  Report Type: Spontaneous
  Country: US (occurrence: US)
  Receive Date: 20180725
  Receipt Date: 20180905
  Transmission Date: 20181010
  Serious: Yes (Other)
  Sender: FDA-Public Use
  Company Number: US-JNJFOC-20180723419

PATIENT
  Sex: Male

DRUGS (2)
  1. FENTANYL TRANSDERMAL SYSTEM [Suspect]
     Active Substance: FENTANYL
     Indication: BONE CANCER
     Route: 062
     Dates: start: 2015
  2. FENTANYL. [Suspect]
     Active Substance: FENTANYL
     Indication: BONE CANCER
     Route: 062
     Dates: start: 2008, end: 2015

REACTIONS (5)
  - Weight fluctuation [Not Recovered/Not Resolved]
  - Product adhesion issue [Unknown]
  - Decreased appetite [Not Recovered/Not Resolved]
  - Bone cancer [Not Recovered/Not Resolved]
  - Memory impairment [Not Recovered/Not Resolved]
